FAERS Safety Report 25961727 (Version 1)
Quarter: 2025Q4

REPORT INFORMATION
  Report Type: Spontaneous
  Country: US (occurrence: US)
  Receive Date: 20251027
  Receipt Date: 20251027
  Transmission Date: 20260118
  Serious: No
  Sender: BRISTOL-MYERS SQUIBB COMPANY
  Company Number: US-BRISTOL-MYERS SQUIBB COMPANY-2025-145703

PATIENT
  Age: 5 Decade
  Sex: Male

DRUGS (1)
  1. COBENFY [Suspect]
     Active Substance: TROSPIUM CHLORIDE\XANOMELINE
     Indication: Schizophrenia
     Dosage: DOSE AND STRENGTH: 50/20 MG
     Route: 048
     Dates: start: 2025

REACTIONS (3)
  - Hypertension [Unknown]
  - Condition aggravated [Unknown]
  - Treatment noncompliance [Unknown]
